FAERS Safety Report 11417019 (Version 2)
Quarter: 2015Q4

REPORT INFORMATION
  Report Type: Spontaneous
  Country: US (occurrence: US)
  Receive Date: 20150825
  Receipt Date: 20151030
  Transmission Date: 20160304
  Serious: Yes (Hospitalization)
  Sender: FDA-Public Use
  Company Number: US-PFIZER INC-2015221768

PATIENT
  Age: 64 Year
  Sex: Male

DRUGS (1)
  1. TIKOSYN [Suspect]
     Active Substance: DOFETILIDE
     Indication: CHEST PAIN
     Dosage: 125 ?G, 2X/DAY
     Route: 048

REACTIONS (5)
  - Pneumonia [Unknown]
  - Cough [Unknown]
  - Arrhythmia [Unknown]
  - Dyspnoea [Unknown]
  - Chest pain [Unknown]
